FAERS Safety Report 18608508 (Version 3)
Quarter: 2021Q2

REPORT INFORMATION
  Report Type: Report from Study
  Country: None (occurrence: US)
  Receive Date: 20201212
  Receipt Date: 20210415
  Transmission Date: 20210717
  Serious: Yes (Hospitalization, Other)
  Sender: FDA-Public Use
  Company Number: US-ABBVIE-20K-163-3687931-00

PATIENT
  Age: 66 Year
  Sex: Female
  Weight: 73.55 kg

DRUGS (1)
  1. HUMIRA [Suspect]
     Active Substance: ADALIMUMAB
     Indication: RHEUMATOID ARTHRITIS
     Dosage: CITRATE FREE
     Route: 058
     Dates: start: 2004

REACTIONS (5)
  - Hip arthroplasty [Unknown]
  - Carcinoid tumour of the gastrointestinal tract [Recovered/Resolved]
  - Knee arthroplasty [Unknown]
  - Carcinoid tumour [Recovered/Resolved]
  - Intestinal resection [Unknown]

NARRATIVE: CASE EVENT DATE: 201812
